FAERS Safety Report 5003035-3 (Version None)
Quarter: 2006Q2

REPORT INFORMATION
  Report Type: 
  Country: None (occurrence: None)
  Receive Date: 20060516
  Receipt Date: 20051017
  Transmission Date: 20061013
  Serious: Yes (Hospitalization)
  Sender: FDA-Public Use
  Company Number: US-MERCK-0510USA07728

PATIENT
  Age: 53 Year
  Sex: Male
  Weight: 127 kg

DRUGS (31)
  1. VIOXX [Suspect]
     Indication: ARTHRITIS
     Route: 048
     Dates: start: 20000313, end: 20021206
  2. VIOXX [Suspect]
     Route: 048
     Dates: start: 20000313, end: 20021206
  3. KLOR-CON [Concomitant]
     Indication: BLOOD POTASSIUM
     Route: 065
  4. NEURONTIN [Concomitant]
     Route: 065
  5. SPIRONOLACTONE [Concomitant]
     Indication: FLUID RETENTION
     Route: 048
  6. SPIRONOLACTONE [Concomitant]
     Indication: HYPERTENSION
     Route: 048
  7. PROPOXYPHENE HYDROCHLORIDE [Concomitant]
     Route: 065
  8. ACCUPRIL [Concomitant]
     Indication: HYPERTENSION
     Route: 048
     Dates: start: 19990101
  9. CARTIA (DILTIAZEM HYDROCHLORIDE) [Concomitant]
     Indication: HYPERTENSION
     Route: 065
  10. METFORMIN [Concomitant]
     Indication: DIABETES MELLITUS
     Route: 048
  11. ASPIRIN [Concomitant]
     Indication: CARDIAC DISORDER
     Route: 048
     Dates: start: 19950101
  12. ASPIRIN [Concomitant]
     Indication: PROPHYLAXIS
     Route: 048
     Dates: start: 19950101
  13. PLAVIX [Concomitant]
     Indication: ARTERIAL OCCLUSIVE DISEASE
     Route: 065
  14. METOCLOPRAMIDE [Concomitant]
     Route: 048
  15. BIDEX [Concomitant]
     Route: 065
  16. METHYLPREDNISOLONE [Concomitant]
     Route: 065
  17. MOBIC [Concomitant]
     Route: 065
  18. GLIPIZIDE [Concomitant]
     Indication: HYPERTENSION
     Route: 065
  19. ACTOS [Concomitant]
     Indication: DIABETES MELLITUS
     Route: 065
  20. CIMETIDINE [Concomitant]
     Route: 065
  21. VIAGRA [Concomitant]
     Route: 065
  22. GLUCOPHAGE [Concomitant]
     Indication: DIABETES MELLITUS
     Route: 065
  23. AMOXICILLIN [Concomitant]
     Route: 065
  24. AMARYL [Concomitant]
     Route: 065
  25. SKELAXIN [Concomitant]
     Route: 065
  26. CARDIZEM [Concomitant]
     Route: 065
  27. ZITHROMAX [Concomitant]
     Route: 065
  28. MOTRIN [Concomitant]
     Route: 048
     Dates: start: 19950101
  29. NAPROXEN [Concomitant]
     Route: 048
     Dates: start: 19950101
  30. ALEVE (CAPLET) [Concomitant]
     Route: 048
     Dates: start: 19950101
  31. TYLENOL (CAPLET) [Concomitant]
     Route: 048
     Dates: start: 19950101

REACTIONS (14)
  - ACUTE SINUSITIS [None]
  - BENIGN PROSTATIC HYPERPLASIA [None]
  - BLOOD PRESSURE INADEQUATELY CONTROLLED [None]
  - BURSITIS [None]
  - CARDIAC DISORDER [None]
  - CARDIAC FAILURE CONGESTIVE [None]
  - CELLULITIS [None]
  - CEREBROVASCULAR ACCIDENT [None]
  - DEPRESSION [None]
  - DIVERTICULUM INTESTINAL [None]
  - ERECTILE DYSFUNCTION [None]
  - FLUID RETENTION [None]
  - HYPERTENSIVE CRISIS [None]
  - SYNOVIAL CYST [None]
